FAERS Safety Report 10381978 (Version 1)
Quarter: 2014Q1

REPORT INFORMATION
  Report Type: Spontaneous
  Country: US (occurrence: None)
  Receive Date: 20140306
  Receipt Date: 20140306
  Transmission Date: 20141002
  Serious: Yes (Hospitalization, Other)
  Sender: FDA-Public Use
  Company Number: 163-21880-13090670

PATIENT
  Age: 64 Year
  Sex: Male
  Weight: 91.3 kg

DRUGS (36)
  1. REVLIMID (LENALIDOMIDE) (25 MILLIGRAM, CAPSULES) [Suspect]
     Indication: PLASMA CELL MYELOMA
     Route: 048
     Dates: start: 201302
  2. DEXAMETHASONE [Concomitant]
  3. VELCADE (BORTEZOMIB) [Concomitant]
  4. HYDROCODONE BITARTRATE [Concomitant]
  5. ZOMETA (ZOLEDRONIC ACID) [Concomitant]
  6. TYLENOL 8 HOUR (PARACETAMOL) [Concomitant]
  7. ACYCLOVIR (ACICLOVIR) (ACICLOVIR) [Concomitant]
  8. ALLOPURINOL [Concomitant]
  9. WARFARIN [Concomitant]
  10. BACTRIM DS (BACTRIM) [Concomitant]
  11. ASA (ACETYLSALICYLIC ACID) [Concomitant]
  12. CHLORHEXIDINE [Concomitant]
  13. ULORIC (FEBUXOSTAT) [Concomitant]
  14. PEN-VEE K (PHENOXYMETHYLPENICILLIN POTASSIUM) [Concomitant]
  15. OXYCODONE [Concomitant]
  16. AUGMENTIN [Concomitant]
  17. CEFEPIME [Concomitant]
  18. PERCOCET (OXYCOCET) [Concomitant]
  19. COMPAZINE (PROCHLORPERAZINE EDISYLATE) [Concomitant]
  20. SENOKOT (SENNA FRUIT) [Concomitant]
  21. LORAZEPAM [Concomitant]
  22. VICODIN [Concomitant]
  23. MIRALAX (MACROGOL) [Concomitant]
  24. PREDNISONE [Concomitant]
  25. NEUPOGEN (FILGRASTIM) [Concomitant]
  26. PACKED RED BLOOD CELLS (RED BLOOD CELLS) [Concomitant]
  27. PLATELETS [Concomitant]
  28. IMODIUM (LOPERAMIDE HYDROCHLORIDE) (LOPERAMIDE) [Concomitant]
  29. TOBRAMYCIN [Concomitant]
  30. VANCOMYCIN [Concomitant]
  31. LEVAQUIN (LEVOFLOXACIN) [Concomitant]
  32. TRIAMCINOLONE [Concomitant]
  33. FLUCONAZOLE [Concomitant]
  34. FLUID BOLUS (I.V. SOLUTIONS) [Concomitant]
  35. LASIX (FUROSEMIDE) [Concomitant]
  36. SCOPOLAMINE (HYOSCINE) [Concomitant]

REACTIONS (1)
  - Deep vein thrombosis [None]
